FAERS Safety Report 24210196 (Version 1)
Quarter: 2024Q3

REPORT INFORMATION
  Report Type: Spontaneous
  Country: US (occurrence: US)
  Receive Date: 20240814
  Receipt Date: 20240814
  Transmission Date: 20241016
  Serious: Yes (Other)
  Sender: LUPIN
  Company Number: US-MLMSERVICE-20240724-PI141983-00057-1

PATIENT
  Age: 76 Year
  Sex: Female

DRUGS (6)
  1. ATORVASTATIN CALCIUM [Interacting]
     Active Substance: ATORVASTATIN CALCIUM
     Indication: Product used for unknown indication
     Dosage: UNK LOW DOSE
     Route: 065
     Dates: start: 2021
  2. ATORVASTATIN CALCIUM [Interacting]
     Active Substance: ATORVASTATIN CALCIUM
     Dosage: 20 MILLIGRAM, QD
     Route: 065
  3. TRAMETINIB [Interacting]
     Active Substance: TRAMETINIB
     Indication: Non-small cell lung cancer stage IV
     Dosage: 2 MILLIGRAM, QD, DAILY
     Route: 048
  4. DABRAFENIB [Interacting]
     Active Substance: DABRAFENIB
     Indication: Non-small cell lung cancer stage IV
     Dosage: 150 MILLIGRAM, BID, TWICE DAILY
     Route: 048
  5. LISINOPRIL [Concomitant]
     Active Substance: LISINOPRIL
     Indication: Product used for unknown indication
     Dosage: 20 MILLIGRAM, QD
     Route: 048
  6. LISINOPRIL [Concomitant]
     Active Substance: LISINOPRIL
     Dosage: 40 MILLIGRAM, QD, INCREASED
     Route: 048

REACTIONS (4)
  - Drug-induced liver injury [Recovered/Resolved]
  - Granulomatous liver disease [Recovered/Resolved]
  - Cholestatic liver injury [Recovered/Resolved]
  - Drug interaction [Unknown]

NARRATIVE: CASE EVENT DATE: 20220901
